FAERS Safety Report 8159338-7 (Version None)
Quarter: 2012Q1

REPORT INFORMATION
  Report Type: 
  Country: None (occurrence: None)
  Receive Date: 20120223
  Receipt Date: 20120216
  Transmission Date: 20120608
  Serious: Yes (Death)
  Sender: FDA-Public Use
  Company Number: US-PFIZER INC-2008002938

PATIENT
  Age: 47 Year
  Sex: Female

DRUGS (6)
  1. BENZODIAZEPINE DERIVATIVES [Suspect]
  2. TRAZODONE HCL [Suspect]
     Dosage: OVERDOSE AMOUNT UNKNOWN
     Route: 048
     Dates: start: 20060101, end: 20060101
  3. PHENYTOIN [Suspect]
     Dosage: OVERDOSE AMOUNT UNKNOWN
     Route: 048
     Dates: start: 20060101, end: 20060101
  4. GABAPENTIN [Suspect]
     Dosage: OVERDOSE AMOUNT UNKNOWN
     Route: 048
     Dates: start: 20060101, end: 20060101
  5. EFFEXOR [Suspect]
     Dosage: OVERDOSE AMOUNT UNKNOWN
     Route: 048
     Dates: start: 20060101, end: 20060101
  6. METOPROLOL TARTRATE [Suspect]
     Dosage: OVERDOSE AMOUNT UNKNOWN
     Route: 048
     Dates: start: 20060101, end: 20060101

REACTIONS (2)
  - INTENTIONAL OVERDOSE [None]
  - COMPLETED SUICIDE [None]
